FAERS Safety Report 8298469-8 (Version None)
Quarter: 2012Q2

REPORT INFORMATION
  Report Type: 
  Country: None (occurrence: None)
  Receive Date: 20120417
  Receipt Date: 20120404
  Transmission Date: 20120825
  Serious: Yes (Hospitalization)
  Sender: FDA-Public Use
  Company Number: 1248287

PATIENT
  Age: 69 Year
  Sex: Female
  Weight: 81.1 kg

DRUGS (12)
  1. PENTOSTATIN [Suspect]
     Indication: CHRONIC LYMPHOCYTIC LEUKAEMIA
     Dosage: 4 MG/M2, DAY 1 OF EACH CYCLE
     Dates: start: 20120326, end: 20120326
  2. ZESTORETIC [Concomitant]
  3. (FISH OIL) [Concomitant]
  4. (CRANBERRY /01512301/) [Concomitant]
  5. (ESTROGEN) [Concomitant]
  6. LORAZEPAM [Concomitant]
  7. CYTOXAN [Suspect]
     Indication: CHRONIC LYMPHOCYTIC LEUKAEMIA
     Dosage: 600 MG/M2, DAY 1 OF EACH CYCLE
     Dates: start: 20120326, end: 20120326
  8. (CALCIUM /00060701/) [Concomitant]
  9. (VITAMIN C /00008001/) [Concomitant]
  10. (MULTIVITAMIN /00097801/) [Concomitant]
  11. RITUXAN [Suspect]
     Indication: CHRONIC LYMPHOCYTIC LEUKAEMIA
     Dosage: 100 MG C1D1, 375 MG/M2 C1D3 AND C1D5, DAY 1 OF EACH CYCLE
     Route: 042
     Dates: start: 20120326, end: 20120326
  12. COMPAZINE [Concomitant]

REACTIONS (9)
  - NAUSEA [None]
  - WHITE BLOOD CELL COUNT DECREASED [None]
  - VOMITING [None]
  - BODY TEMPERATURE INCREASED [None]
  - INFUSION RELATED REACTION [None]
  - CHILLS [None]
  - DIARRHOEA [None]
  - BLOOD LACTATE DEHYDROGENASE INCREASED [None]
  - TUMOUR LYSIS SYNDROME [None]
